FAERS Safety Report 24836244 (Version 4)
Quarter: 2025Q3

REPORT INFORMATION
  Report Type: Report from Study
  Country: US (occurrence: US)
  Receive Date: 20250113
  Receipt Date: 20250806
  Transmission Date: 20251021
  Serious: Yes (Hospitalization, Other)
  Sender: ROCHE
  Company Number: US-ROCHE-10000173625

PATIENT
  Age: 55 Year
  Sex: Female

DRUGS (18)
  1. RITUXAN [Suspect]
     Active Substance: RITUXIMAB
     Indication: Immunology test
     Dosage: LAST DOSE IN MAY-2018 AND THEN IN 6 MONTHS
     Route: 042
     Dates: start: 20220614
  2. RITUXAN [Suspect]
     Active Substance: RITUXIMAB
     Indication: Neuromyelitis optica spectrum disorder
  3. ENSPRYNG [Suspect]
     Active Substance: SATRALIZUMAB-MWGE
     Indication: Neuromyelitis optica spectrum disorder
     Route: 058
  4. DIFLUCAN [Concomitant]
     Active Substance: FLUCONAZOLE
  5. FLAGYL [Concomitant]
     Active Substance: METRONIDAZOLE\METRONIDAZOLE HYDROCHLORIDE
  6. VAGIFEM [Concomitant]
     Active Substance: ESTRADIOL
  7. PERCOCET [Concomitant]
     Active Substance: ACETAMINOPHEN\OXYCODONE HYDROCHLORIDE
  8. TRAMADOL [Concomitant]
     Active Substance: TRAMADOL
  9. ATIVAN [Concomitant]
     Active Substance: LORAZEPAM
  10. LYRICA [Concomitant]
     Active Substance: PREGABALIN
  11. FLEXERIL [Concomitant]
     Active Substance: CYCLOBENZAPRINE HYDROCHLORIDE
  12. ZOLPIDEM [Concomitant]
     Active Substance: ZOLPIDEM TARTRATE
     Dates: start: 20220422
  13. PROMETHAZINE [Concomitant]
     Active Substance: PROMETHAZINE HYDROCHLORIDE
     Dates: start: 20220608
  14. PHENAZOPYRIDINE [Concomitant]
     Active Substance: PHENAZOPYRIDINE
     Route: 048
     Dates: start: 20220523
  15. PANTOPRAZOLE [Concomitant]
     Active Substance: PANTOPRAZOLE
     Route: 048
     Dates: start: 20220330
  16. METOPROLOL SUCCINATE [Concomitant]
     Active Substance: METOPROLOL SUCCINATE
     Dates: start: 20211230
  17. CEFUROXIME [Concomitant]
     Active Substance: CEFUROXIME
     Dosage: 500 MCG FOR 10 DAYS
     Route: 048
     Dates: start: 20220608
  18. AZELASTINE [Concomitant]
     Active Substance: AZELASTINE
     Route: 045
     Dates: start: 20211214

REACTIONS (19)
  - Pneumonia [Recovered/Resolved]
  - Blindness [Unknown]
  - Vaginal infection [Unknown]
  - Urinary tract infection [Unknown]
  - Gait inability [Unknown]
  - Glucose tolerance impaired [Unknown]
  - Fatigue [Unknown]
  - Depression [Unknown]
  - Atrophic vulvovaginitis [Unknown]
  - Obesity [Unknown]
  - Hypertension [Unknown]
  - Off label use [Unknown]
  - Blood oestrogen decreased [Unknown]
  - Influenza [Not Recovered/Not Resolved]
  - Chest pain [Recovering/Resolving]
  - Influenza like illness [Recovering/Resolving]
  - Headache [Unknown]
  - Tremor [Unknown]
  - Swelling face [Unknown]

NARRATIVE: CASE EVENT DATE: 20241001
